FAERS Safety Report 24791629 (Version 1)
Quarter: 2024Q4

REPORT INFORMATION
  Report Type: Spontaneous
  Country: ES (occurrence: ES)
  Receive Date: 20241231
  Receipt Date: 20241231
  Transmission Date: 20250115
  Serious: Yes (Other)
  Sender: SANOFI AVENTIS
  Company Number: ES-DialogSolutions-SAAVPROD-PI723385-C1

PATIENT
  Age: 34 Year
  Sex: Female

DRUGS (8)
  1. RIFAMPIN [Suspect]
     Active Substance: RIFAMPIN
     Indication: Pulmonary tuberculosis
     Dosage: UNK
     Dates: start: 199609
  2. RIFAMPIN [Suspect]
     Active Substance: RIFAMPIN
     Dosage: UNK
     Dates: start: 199703
  3. ISONIAZID [Suspect]
     Active Substance: ISONIAZID
     Indication: Pulmonary tuberculosis
     Dosage: UNK
     Dates: start: 199609
  4. ISONIAZID [Suspect]
     Active Substance: ISONIAZID
     Dosage: UNK
     Dates: start: 199703
  5. PYRAZINAMIDE [Suspect]
     Active Substance: PYRAZINAMIDE
     Indication: Pulmonary tuberculosis
     Dosage: UNK
     Dates: start: 199609
  6. PYRAZINAMIDE [Suspect]
     Active Substance: PYRAZINAMIDE
     Dosage: UNK
     Dates: start: 199703
  7. ETHAMBUTOL [Suspect]
     Active Substance: ETHAMBUTOL HYDROCHLORIDE
     Indication: Pulmonary tuberculosis
     Dosage: UNK
     Dates: start: 199609
  8. ETHAMBUTOL [Suspect]
     Active Substance: ETHAMBUTOL HYDROCHLORIDE
     Dosage: UNK
     Dates: start: 199703

REACTIONS (13)
  - Superior vena cava syndrome [Recovered/Resolved]
  - Headache [Recovered/Resolved]
  - Swelling face [Recovered/Resolved]
  - Swelling [Recovered/Resolved]
  - Jugular vein distension [Recovered/Resolved]
  - Cyanosis [Recovered/Resolved]
  - Lymphadenopathy mediastinal [Recovered/Resolved]
  - Lymphadenopathy [Recovered/Resolved]
  - Pneumothorax [Recovered/Resolved]
  - Pleural effusion [Recovered/Resolved]
  - Granulomatous lymphadenitis [Recovered/Resolved]
  - Necrotic lymphadenopathy [Recovered/Resolved]
  - Paradoxical drug reaction [Recovered/Resolved]

NARRATIVE: CASE EVENT DATE: 19970101
